FAERS Safety Report 10914272 (Version 1)
Quarter: 2015Q1

REPORT INFORMATION
  Report Type: Report from Study
  Country: KR (occurrence: KR)
  Receive Date: 20150313
  Receipt Date: 20150313
  Transmission Date: 20150721
  Serious: Yes (Hospitalization)
  Sender: FDA-Public Use
  Company Number: KR-EISAI MEDICAL RESEARCH-EC-2014-002427

PATIENT
  Age: 40 Year
  Sex: Male
  Weight: 58.6 kg

DRUGS (19)
  1. EVOSKIN C TOTUM LITHIUM [Concomitant]
  2. TELBIVUDINE [Concomitant]
     Active Substance: TELBIVUDINE
  3. PHAZYME COMPLEX [Concomitant]
  4. HYDROCORTISONE. [Concomitant]
     Active Substance: HYDROCORTISONE
  5. SUCRALFATE. [Concomitant]
     Active Substance: SUCRALFATE
  6. GLIMEPIRIDE. [Concomitant]
     Active Substance: GLIMEPIRIDE
  7. LENVATINIB [Suspect]
     Active Substance: LENVATINIB
     Route: 048
     Dates: start: 20141215, end: 20150112
  8. PANTOPRAZOLE [Concomitant]
     Active Substance: PANTOPRAZOLE SODIUM
  9. LENVATINIB [Suspect]
     Active Substance: LENVATINIB
     Indication: HEPATOCELLULAR CARCINOMA
     Route: 048
     Dates: start: 20140403, end: 20141209
  10. SILYMARIN [Concomitant]
     Active Substance: MILK THISTLE
  11. LACTULOSE. [Concomitant]
     Active Substance: LACTULOSE
  12. TIROPRAMIDE [Concomitant]
     Active Substance: TIROPRAMIDE
  13. PREDNICARBATE. [Concomitant]
     Active Substance: PREDNICARBATE
  14. LOPERAMIDE [Concomitant]
     Active Substance: LOPERAMIDE
  15. GEMIGLIPTIN [Concomitant]
  16. URSODEOXYCHOLIC ACID [Concomitant]
     Active Substance: URSODIOL
  17. METFORMIN XR [Concomitant]
  18. CENTRUM [Concomitant]
     Active Substance: VITAMINS
  19. MORPHINE SULFATE. [Concomitant]
     Active Substance: MORPHINE SULFATE

REACTIONS (2)
  - Ascites [Not Recovered/Not Resolved]
  - Decreased appetite [Recovering/Resolving]

NARRATIVE: CASE EVENT DATE: 20140528
